FAERS Safety Report 7845923-6 (Version None)
Quarter: 2011Q4

REPORT INFORMATION
  Report Type: 
  Country: None (occurrence: None)
  Receive Date: 20111025
  Receipt Date: 20110329
  Transmission Date: 20120403
  Serious: Yes (Hospitalization, Other)
  Sender: FDA-Public Use
  Company Number: US-BAYER-201037287NA

PATIENT
  Sex: Male
  Weight: 79 kg

DRUGS (29)
  1. MAGNEVIST [Suspect]
     Indication: NUCLEAR MAGNETIC RESONANCE IMAGING
     Dosage: UNK
     Dates: start: 20040827, end: 20040827
  2. ATACAND [Concomitant]
  3. RENVELA [Concomitant]
  4. ALTERNAGEL [Concomitant]
  5. OPTIMARK [Suspect]
     Indication: PRODUCT USED FOR UNKNOWN INDICATION
  6. HYDRALAZINE HCL [Concomitant]
  7. BENICAR [Concomitant]
  8. VASOTEC [Concomitant]
  9. RENAGEL [Concomitant]
  10. EPO [Concomitant]
  11. IRON [Concomitant]
  12. ARANESP [Concomitant]
  13. CORDARONE [Concomitant]
  14. DIGOXIN [Concomitant]
  15. SENSIPAR [Concomitant]
  16. ZEMPLAR [Concomitant]
  17. METOPROLOL TARTRATE [Concomitant]
  18. COUMADIN [Concomitant]
  19. PHOSLO [Concomitant]
  20. PACERONE [Concomitant]
  21. ZOMETA [Concomitant]
  22. PEPCID [Concomitant]
  23. MAGNEVIST [Suspect]
     Dosage: 15 ML, UNK
     Dates: start: 20070104, end: 20070104
  24. CLONIDINE [Concomitant]
  25. ACCUPRIL [Concomitant]
  26. TOPROL-XL [Concomitant]
     Dosage: 100 MG, BID
     Dates: start: 20040101
  27. LISINOPRIL [Concomitant]
  28. NORVASC [Concomitant]
  29. TIZANIDINE HCL [Concomitant]

REACTIONS (17)
  - SKIN DISCOLOURATION [None]
  - SKIN TIGHTNESS [None]
  - PEAU D'ORANGE [None]
  - DEPRESSION [None]
  - RASH PAPULAR [None]
  - SKIN HYPERTROPHY [None]
  - ANXIETY [None]
  - INSOMNIA [None]
  - MOBILITY DECREASED [None]
  - ARTHRALGIA [None]
  - RESTLESSNESS [None]
  - NEPHROGENIC SYSTEMIC FIBROSIS [None]
  - PAIN [None]
  - GENERAL PHYSICAL HEALTH DETERIORATION [None]
  - STRESS [None]
  - MUSCULOSKELETAL STIFFNESS [None]
  - JOINT STIFFNESS [None]
